FAERS Safety Report 7448279-6 (Version None)
Quarter: 2011Q2

REPORT INFORMATION
  Report Type: 
  Country: None (occurrence: None)
  Receive Date: 20110429
  Receipt Date: 20110418
  Transmission Date: 20111010
  Serious: No
  Sender: FDA-Public Use
  Company Number: US-B.I. PHARMACEUTICALS,INC./RIDGEFIELD-2011-BP-11043BP

PATIENT
  Age: 74 Year
  Sex: Female

DRUGS (3)
  1. MICARDIS [Suspect]
     Indication: HYPERTENSION
     Dosage: 20 MG
     Route: 048
     Dates: start: 20110301
  2. ZETIA [Concomitant]
  3. PLAVIX [Concomitant]

REACTIONS (2)
  - PERIPHERAL COLDNESS [None]
  - PAIN IN EXTREMITY [None]
